FAERS Safety Report 7444558-7 (Version None)
Quarter: 2011Q2

REPORT INFORMATION
  Report Type: 
  Country: None (occurrence: None)
  Receive Date: 20110429
  Receipt Date: 20110415
  Transmission Date: 20111010
  Serious: Yes (Hospitalization)
  Sender: FDA-Public Use
  Company Number: TR-MYLANLABS-2011S1008081

PATIENT
  Age: 17 Year
  Sex: Male
  Weight: 63 kg

DRUGS (4)
  1. RISPERIDONE [Suspect]
     Indication: AGGRESSION
     Dosage: 2.5 MG/DAY
     Route: 065
  2. CONCERTA [Interacting]
     Indication: ATTENTION DEFICIT/HYPERACTIVITY DISORDER
     Route: 065
  3. ARIPIPRAZOLE [Interacting]
     Indication: AGGRESSION
     Dosage: NIGHTLY
     Route: 065
  4. RISPERIDONE [Interacting]
     Dosage: 1 MG/DAY IN TWO DIVIDED DOSES
     Route: 065

REACTIONS (2)
  - ACUTE PSYCHOSIS [None]
  - DRUG INTERACTION [None]
